FAERS Safety Report 9398170 (Version 1)
Quarter: 2013Q3

REPORT INFORMATION
  Report Type: Spontaneous
  Country: US (occurrence: US)
  Receive Date: 20130712
  Receipt Date: 20130712
  Transmission Date: 20140515
  Serious: No
  Sender: FDA-Public Use
  Company Number: US-GLAXOSMITHKLINE-A0991456A

PATIENT
  Age: 45 Year
  Sex: Female

DRUGS (5)
  1. FLOVENT [Suspect]
     Indication: DYSPNOEA
     Dosage: 2PUFF SINGLE DOSE
     Route: 055
     Dates: start: 2012
  2. VENTOLIN [Concomitant]
  3. NEURONTIN [Concomitant]
  4. CYMBALTA [Concomitant]
  5. LEVOTHYROXINE [Concomitant]

REACTIONS (3)
  - Chest discomfort [Recovered/Resolved]
  - Dyspnoea [Recovered/Resolved]
  - Chest discomfort [Recovered/Resolved]
